FAERS Safety Report 7417027-8 (Version None)
Quarter: 2011Q2

REPORT INFORMATION
  Report Type: 
  Country: None (occurrence: None)
  Receive Date: 20110415
  Receipt Date: 20110325
  Transmission Date: 20111010
  Serious: Yes (Death, Other)
  Sender: FDA-Public Use
  Company Number: US-BAYER-200928702NA

PATIENT
  Sex: Male

DRUGS (1)
  1. TRASYLOL [Suspect]
     Indication: CARDIAC OPERATION
     Route: 042
     Dates: start: 20070529

REACTIONS (4)
  - INJURY [None]
  - DEATH [None]
  - RENAL FAILURE CHRONIC [None]
  - RENAL FAILURE [None]
